FAERS Safety Report 11472434 (Version 3)
Quarter: 2015Q4

REPORT INFORMATION
  Report Type: Spontaneous
  Country: JP (occurrence: JP)
  Receive Date: 20150908
  Receipt Date: 20151125
  Transmission Date: 20160304
  Serious: Yes (Life-Threatening)
  Sender: FDA-Public Use
  Company Number: JP-AMGEN-JPNSP2015092455

PATIENT
  Age: 64 Year
  Sex: Female
  Weight: 83 kg

DRUGS (12)
  1. ZOMETA [Concomitant]
     Active Substance: ZOLEDRONIC ACID
     Indication: METASTASES TO BONE
     Dosage: 4 MG, QD
     Route: 041
     Dates: start: 20130116, end: 20150731
  2. EPIRUBICIN HYDROCHLORIDE. [Suspect]
     Active Substance: EPIRUBICIN HYDROCHLORIDE
     Indication: BREAST CANCER
     Dosage: 130 MG, QD
     Route: 041
     Dates: start: 20141118, end: 20150213
  3. ENDOXAN                            /00021101/ [Suspect]
     Active Substance: CYCLOPHOSPHAMIDE
     Indication: BREAST CANCER
     Dosage: 700 MG, QD
     Route: 041
     Dates: start: 20141118, end: 20150213
  4. DECADRON [Concomitant]
     Active Substance: DEXAMETHASONE
     Indication: VOMITING
     Dosage: 8 MG, BID
     Route: 048
     Dates: start: 20150319, end: 20150801
  5. DOCETAXEL. [Suspect]
     Active Substance: DOCETAXEL
     Indication: BREAST CANCER
     Dosage: 120 MG, QD
     Route: 041
     Dates: start: 20150319, end: 20150731
  6. EMEND [Concomitant]
     Active Substance: APREPITANT
     Dosage: 80 MG, QD
     Route: 048
     Dates: start: 20141118, end: 20150215
  7. DEXART [Concomitant]
     Active Substance: DEXAMETHASONE SODIUM PHOSPHATE
     Indication: VOMITING
     Dosage: 3.3 MG, QD
     Route: 042
     Dates: start: 20141118, end: 20150828
  8. CELECOX [Concomitant]
     Active Substance: CELECOXIB
     Indication: BACK PAIN
     Dosage: 100 MG, BID
     Route: 048
     Dates: start: 20141205
  9. G-LASTA [Suspect]
     Active Substance: PEGFILGRASTIM
     Indication: COLONY STIMULATING FACTOR PROPHYLAXIS
     Dosage: 3.6 MG, QD
     Route: 058
     Dates: start: 20150214, end: 20150801
  10. ISOBIDE                            /00586301/ [Concomitant]
     Indication: BRAIN OEDEMA
     Dosage: UNK UNK, BID
     Route: 048
     Dates: start: 20141114, end: 20150828
  11. 5-FU                               /00098801/ [Suspect]
     Active Substance: FLUOROURACIL
     Indication: BREAST CANCER
     Dosage: 700 MG, QD
     Route: 041
     Dates: start: 20141118, end: 20150213
  12. EMEND [Concomitant]
     Active Substance: APREPITANT
     Indication: VOMITING
     Dosage: 125 MG, QD
     Route: 048
     Dates: start: 20141118, end: 20150213

REACTIONS (2)
  - Capillary leak syndrome [Recovering/Resolving]
  - Pyrexia [Recovered/Resolved]

NARRATIVE: CASE EVENT DATE: 20150331
